FAERS Safety Report 8230125-4 (Version None)
Quarter: 2012Q1

REPORT INFORMATION
  Report Type: 
  Country: None (occurrence: None)
  Receive Date: 20120323
  Receipt Date: 20120321
  Transmission Date: 20120608
  Serious: Yes (Other)
  Sender: FDA-Public Use
  Company Number: US-PFIZER INC-2012074272

PATIENT
  Sex: Female
  Weight: 63.492 kg

DRUGS (2)
  1. LIPITOR [Suspect]
     Indication: BLOOD CHOLESTEROL INCREASED
     Dosage: 20 MG, DAILY
     Route: 048
  2. LOPRESSOR [Concomitant]
     Indication: HYPERTENSION
     Dosage: 75 MG, DAILY

REACTIONS (2)
  - TYPE 2 DIABETES MELLITUS [None]
  - MEMORY IMPAIRMENT [None]
